FAERS Safety Report 12385554 (Version 5)
Quarter: 2019Q1

REPORT INFORMATION
  Report Type: Spontaneous
  Country: US (occurrence: US)
  Receive Date: 20160519
  Receipt Date: 20190107
  Transmission Date: 20190417
  Serious: Yes (Life-Threatening, Hospitalization, Other)
  Sender: FDA-Public Use
  Company Number: US-GLAXOSMITHKLINE-US2016GSK070601

PATIENT
  Age: 66 Year
  Sex: Female

DRUGS (2)
  1. MEPRON [Suspect]
     Active Substance: ATOVAQUONE
     Indication: BONE MARROW TRANSPLANT
     Dosage: UNK
  2. MEPRON [Suspect]
     Active Substance: ATOVAQUONE
     Indication: LUNG DISORDER
     Dosage: UNK
     Dates: start: 2014

REACTIONS (9)
  - Leukaemia [Unknown]
  - Bone marrow transplant [Unknown]
  - Product availability issue [Unknown]
  - Intentional product misuse [Unknown]
  - Ill-defined disorder [Unknown]
  - Chemotherapy [Unknown]
  - Cough [Recovered/Resolved]
  - Dyspnoea [Unknown]
  - Therapy cessation [Unknown]

NARRATIVE: CASE EVENT DATE: 20140609
